FAERS Safety Report 4969053-6 (Version None)
Quarter: 2006Q2

REPORT INFORMATION
  Report Type: 
  Country: None (occurrence: None)
  Receive Date: 20060411
  Receipt Date: 20060217
  Transmission Date: 20061013
  Serious: Yes (Hospitalization, Disabling)
  Sender: FDA-Public Use
  Company Number: US-MERCK-0602USA04730

PATIENT
  Age: 29 Year
  Sex: Female

DRUGS (12)
  1. INVANZ [Suspect]
     Indication: PELVIC ABSCESS
     Route: 042
     Dates: start: 20060206, end: 20060206
  2. INVANZ [Suspect]
     Route: 042
     Dates: start: 20060207, end: 20060216
  3. ELAVIL [Concomitant]
     Route: 065
  4. VITAMIN B COMPLEX [Concomitant]
     Route: 065
  5. ROCALTROL [Concomitant]
     Route: 065
  6. PLAVIX [Concomitant]
     Route: 065
  7. AGGRENOX [Concomitant]
     Route: 065
  8. LOVENOX [Concomitant]
     Route: 065
  9. TRILEPTAL [Concomitant]
     Route: 065
  10. ZOCOR [Concomitant]
     Route: 065
  11. POTASSIUM (UNSPECIFIED) [Concomitant]
     Route: 065
  12. PROTONIX [Concomitant]
     Route: 065

REACTIONS (3)
  - ABASIA [None]
  - ASTHENIA [None]
  - DYSARTHRIA [None]
